FAERS Safety Report 4333219-9 (Version None)
Quarter: 2004Q2

REPORT INFORMATION
  Report Type: 
  Country: None (occurrence: None)
  Receive Date: 20040401
  Receipt Date: 20040323
  Transmission Date: 20050107
  Serious: Yes (Other)
  Sender: FDA-Public Use
  Company Number: US-JNJFOC-20040105361

PATIENT
  Age: 25 Year
  Sex: Male
  Weight: 89.3586 kg

DRUGS (5)
  1. RISPERDAL CONSTA [Suspect]
     Indication: PSYCHOTIC DISORDER
     Dosage: 25 MG, 1 IN 2 WEEK, INTRAMUSCULAR
     Route: 030
     Dates: start: 20040114
  2. RISPERDAL [Suspect]
     Indication: PSYCHOTIC DISORDER
     Dosage: SEE IMAGE ORAL
     Route: 048
  3. ZYPREXA [Suspect]
     Dosage: 30 MG, 1 IN 1 DAY,ORAL
     Route: 048
     Dates: start: 20040107, end: 20040119
  4. PROLIXIN [Suspect]
     Dosage: 2.5 MG, 2 IN 1 DAY, ORAL
     Route: 048
     Dates: end: 20040117
  5. ZOLOFT [Concomitant]

REACTIONS (2)
  - ELECTROCARDIOGRAM QT CORRECTED INTERVAL PROLONGED [None]
  - ELECTROCARDIOGRAM QT PROLONGED [None]
